FAERS Safety Report 6525154-2 (Version None)
Quarter: 2010Q1

REPORT INFORMATION
  Report Type: 
  Country: None (occurrence: None)
  Receive Date: 20100104
  Receipt Date: 20091204
  Transmission Date: 20100710
  Serious: No
  Sender: FDA-Public Use
  Company Number: US-BAYER-200941971NA

PATIENT
  Age: 31 Year
  Sex: Female
  Weight: 72 kg

DRUGS (2)
  1. MIRENA [Suspect]
     Indication: CONTRACEPTION
     Dosage: CONTINUOUS
     Route: 015
     Dates: start: 20091019, end: 20091204
  2. MIRENA [Suspect]
     Dosage: CONTINUOUS
     Route: 015
     Dates: start: 20091204

REACTIONS (3)
  - BACK PAIN [None]
  - DEVICE EXPULSION [None]
  - MEDICAL DEVICE COMPLICATION [None]
